FAERS Safety Report 24820437 (Version 1)
Quarter: 2025Q1

REPORT INFORMATION
  Report Type: Spontaneous
  Country: US (occurrence: None)
  Receive Date: 20250108
  Receipt Date: 20250108
  Transmission Date: 20250408
  Serious: Yes (Other)
  Sender: FDA-CTU
  Company Number: None

PATIENT
  Age: 81 Year
  Sex: Male

DRUGS (1)
  1. LENALIDOMIDE [Suspect]
     Active Substance: LENALIDOMIDE
     Indication: Plasma cell myeloma
     Dosage: 5 MG QD ORAL
     Route: 048
     Dates: start: 20231109, end: 20250108

REACTIONS (2)
  - Anaemia [None]
  - Drug ineffective [None]

NARRATIVE: CASE EVENT DATE: 20250108
